FAERS Safety Report 15573786 (Version 1)
Quarter: 2018Q4

REPORT INFORMATION
  Report Type: Spontaneous
  Country: US (occurrence: US)
  Receive Date: 20181101
  Receipt Date: 20181101
  Transmission Date: 20190205
  Serious: No
  Sender: FDA-Public Use
  Company Number: US-TEVA-2018-US-968028

PATIENT
  Sex: Female

DRUGS (1)
  1. AIRDUO RESPICLICK [Suspect]
     Active Substance: FLUTICASONE PROPIONATE\SALMETEROL XINAFOATE
     Dosage: 232/14 MCG, 1 PUFF TWICE DAILY
     Route: 048
     Dates: start: 20181020

REACTIONS (6)
  - Flushing [Unknown]
  - Feeling hot [Unknown]
  - Dysgeusia [Unknown]
  - Incorrect dose administered [Unknown]
  - Intercepted product prescribing error [Unknown]
  - Hyperhidrosis [Unknown]

NARRATIVE: CASE EVENT DATE: 201810
